FAERS Safety Report 13710156 (Version 1)
Quarter: 2017Q3

REPORT INFORMATION
  Report Type: Spontaneous
  Country: DE (occurrence: DE)
  Receive Date: 20170703
  Receipt Date: 20170703
  Transmission Date: 20171127
  Serious: Yes (Congenital Anomaly)
  Sender: FDA-Public Use
  Company Number: DE-AUROBINDO-AUR-APL-2017-36098

PATIENT
  Age: 1 Day
  Sex: Male
  Weight: 3165 kg

DRUGS (3)
  1. LAMOTRIGINE. [Suspect]
     Active Substance: LAMOTRIGINE
     Indication: BIPOLAR DISORDER
     Dosage: 100 MG, ONCE A DAY
     Route: 064
     Dates: start: 20150108, end: 20160910
  2. HOGGAR NIGHT [Concomitant]
     Indication: SLEEP DISORDER
     Dosage: 25 MG, ONCE A DAY
     Route: 064
  3. FOLIO FORTE [Concomitant]
     Active Substance: FOLIC ACID\VITAMINS
     Indication: PROPHYLAXIS OF NEURAL TUBE DEFECT
     Dosage: 0.8 MG, ONCE A DAY
     Route: 064
     Dates: start: 20150108, end: 20150910

REACTIONS (1)
  - Haemangioma congenital [Recovering/Resolving]

NARRATIVE: CASE EVENT DATE: 20150910
